FAERS Safety Report 10567823 (Version 1)
Quarter: 2014Q4

REPORT INFORMATION
  Report Type: Spontaneous
  Country: US (occurrence: None)
  Receive Date: 20141105
  Receipt Date: 20141105
  Transmission Date: 20150529
  Serious: Yes (Other)
  Sender: FDA-Public Use
  Company Number: None

PATIENT
  Age: 58 Year
  Sex: Female
  Weight: 53.52 kg

DRUGS (1)
  1. SOMATULINE DEPOT [Suspect]
     Active Substance: LANREOTIDE ACETATE
     Indication: ACROMEGALY
     Dosage: 120 MG INJECTION ONCE EVERY 28 DAYS INTO THE MUSCLE
     Route: 030
     Dates: start: 20140618, end: 20141104

REACTIONS (3)
  - Abdominal pain [None]
  - Alopecia [None]
  - Flatulence [None]

NARRATIVE: CASE EVENT DATE: 20141103
